FAERS Safety Report 7491560-5 (Version None)
Quarter: 2011Q2

REPORT INFORMATION
  Report Type: 
  Country: None (occurrence: None)
  Receive Date: 20110519
  Receipt Date: 20110516
  Transmission Date: 20111010
  Serious: Yes (Other)
  Sender: FDA-Public Use
  Company Number: GB-TEVA-281974ISR

PATIENT
  Age: 63 Year
  Sex: Male

DRUGS (3)
  1. CLOZAPINE [Interacting]
     Dates: start: 20110505
  2. VALPROIC ACID [Suspect]
     Indication: CONVULSION
     Dosage: 800 MILLIGRAM;
     Route: 048
  3. CLOZAPINE [Interacting]
     Dates: start: 20081124, end: 20110501

REACTIONS (4)
  - LEUKOPENIA [None]
  - NEUTROPHIL COUNT DECREASED [None]
  - DRUG INTERACTION [None]
  - WHITE BLOOD CELL COUNT DECREASED [None]
